FAERS Safety Report 25770669 (Version 4)
Quarter: 2025Q4

REPORT INFORMATION
  Report Type: Spontaneous
  Country: JP (occurrence: JP)
  Receive Date: 20250908
  Receipt Date: 20251212
  Transmission Date: 20260118
  Serious: Yes (Hospitalization)
  Sender: AMGEN
  Company Number: JP-AMGEN-JPNSP2025174610

PATIENT
  Age: 74 Year
  Sex: Female

DRUGS (8)
  1. EVENITY [Suspect]
     Active Substance: ROMOSOZUMAB-AQQG
     Indication: Osteoporosis
     Dosage: 210 MILLIGRAM, QMO
     Route: 058
     Dates: start: 20241202, end: 20250801
  2. CELECOXIB [Concomitant]
     Active Substance: CELECOXIB
     Indication: Fracture pain
     Dosage: 100 MILLIGRAM, BID
     Dates: start: 20241202, end: 20250107
  3. CELECOXIB [Concomitant]
     Active Substance: CELECOXIB
     Indication: Compression fracture
  4. EPERISONE [Concomitant]
     Active Substance: EPERISONE
     Indication: Fracture pain
     Dosage: 50 MILLIGRAM, BID
     Dates: start: 20241202, end: 20250107
  5. EPERISONE [Concomitant]
     Active Substance: EPERISONE
     Indication: Compression fracture
  6. REBAMIPIDE [Concomitant]
     Active Substance: REBAMIPIDE
     Indication: Gastrointestinal disorder prophylaxis
     Dosage: 100 MILLIGRAM, BID
     Dates: start: 20241202, end: 20250107
  7. PREGABALIN [Concomitant]
     Active Substance: PREGABALIN
     Indication: Fracture pain
     Dosage: 100 MILLIGRAM, BID
     Dates: start: 20241202, end: 20250107
  8. PREGABALIN [Concomitant]
     Active Substance: PREGABALIN
     Indication: Compression fracture

REACTIONS (1)
  - Transient ischaemic attack [Recovered/Resolved]

NARRATIVE: CASE EVENT DATE: 20250811
